FAERS Safety Report 6336960-1 (Version None)
Quarter: 2009Q3

REPORT INFORMATION
  Report Type: 
  Country: None (occurrence: None)
  Receive Date: 20090901
  Receipt Date: 20090828
  Transmission Date: 20100115
  Serious: Yes (Death)
  Sender: FDA-Public Use
  Company Number: US-AMGEN-US346639

PATIENT
  Sex: Male
  Weight: 57.2 kg

DRUGS (4)
  1. NPLATE [Suspect]
     Indication: IDIOPATHIC THROMBOCYTOPENIC PURPURA
     Route: 058
     Dates: start: 20090202, end: 20090409
  2. PROCRIT [Suspect]
     Indication: MYELODYSPLASTIC SYNDROME
  3. NEUPOGEN [Suspect]
     Indication: MYELODYSPLASTIC SYNDROME
  4. DANAZOL [Concomitant]

REACTIONS (1)
  - DEATH [None]
